FAERS Safety Report 20502953 (Version 1)
Quarter: 2022Q1

REPORT INFORMATION
  Report Type: Spontaneous
  Country: US (occurrence: US)
  Receive Date: 20220222
  Receipt Date: 20220222
  Transmission Date: 20220423
  Serious: No
  Sender: FDA-Public Use
  Company Number: US-ALLERGAN-2118051US

PATIENT
  Age: 90 Year
  Sex: Female

DRUGS (6)
  1. OZURDEX [Suspect]
     Active Substance: DEXAMETHASONE
     Indication: Retinal oedema
     Dosage: 0.7 MG, SINGLE
     Route: 031
     Dates: start: 202104, end: 202104
  2. AVASTIN [Concomitant]
     Active Substance: BEVACIZUMAB
     Indication: Retinal oedema
     Dosage: UNK
     Dates: start: 2017
  3. UNSPECIFIED INGREDIENT [Concomitant]
     Active Substance: UNSPECIFIED INGREDIENT
     Indication: Retinal oedema
     Dosage: UNK
     Dates: start: 2017
  4. LISINOPRIL [Concomitant]
     Active Substance: LISINOPRIL
     Indication: Hypertension
  5. AZOPT [Concomitant]
     Active Substance: BRINZOLAMIDE
     Indication: Glaucoma
  6. UNSPECIFIED INGREDIENT [Concomitant]
     Active Substance: UNSPECIFIED INGREDIENT
     Indication: Atrial fibrillation

REACTIONS (6)
  - Memory impairment [Not Recovered/Not Resolved]
  - Pain in extremity [Unknown]
  - Visual impairment [Not Recovered/Not Resolved]
  - Eye pain [Not Recovered/Not Resolved]
  - Headache [Not Recovered/Not Resolved]
  - Vitreous floaters [Not Recovered/Not Resolved]

NARRATIVE: CASE EVENT DATE: 20210401
